FAERS Safety Report 16347640 (Version 1)
Quarter: 2019Q2

REPORT INFORMATION
  Report Type: Spontaneous
  Country: BE (occurrence: BE)
  Receive Date: 20190523
  Receipt Date: 20190523
  Transmission Date: 20190711
  Serious: Yes (Hospitalization)
  Sender: FDA-Public Use
  Company Number: BE-MYLANLABS-2019M1047039

PATIENT
  Age: 68 Year
  Sex: Female
  Weight: 58 kg

DRUGS (9)
  1. UTROGESTAN [Concomitant]
     Active Substance: PROGESTERONE
     Dosage: 100 MILLIGRAM, QD
     Route: 048
     Dates: start: 2013
  2. METHOTREXATE (METHOTREXATE SODIUM) [Interacting]
     Active Substance: METHOTREXATE SODIUM
     Indication: RHEUMATOID ARTHRITIS
     Dosage: 15 MILLIGRAM, QW
     Route: 048
     Dates: start: 2000, end: 20180829
  3. OESTROGEL [Concomitant]
     Active Substance: ESTRADIOL
     Dosage: UNK
     Dates: start: 2013
  4. EMCONCOR [Concomitant]
     Active Substance: BISOPROLOL FUMARATE
     Dosage: 2.5MG - 5 MG EVERY OTHER DAY
     Route: 048
     Dates: start: 2010
  5. FELDENE [Interacting]
     Active Substance: PIROXICAM
     Indication: RHEUMATOID ARTHRITIS
     Dosage: 10 MILLIGRAM, QD
     Route: 048
     Dates: start: 2009
  6. FOLIUMZUUR [Concomitant]
     Active Substance: FOLIC ACID
     Indication: PROPHYLAXIS
     Dosage: 1 MILLIGRAM, QD
     Route: 048
     Dates: start: 2000
  7. OLUMIANT [Suspect]
     Active Substance: BARICITINIB
     Indication: RHEUMATOID ARTHRITIS
     Dosage: 4 MILLIGRAM, QD
     Route: 048
     Dates: start: 20180608, end: 20180829
  8. PARACETAMOL [Concomitant]
     Active Substance: ACETAMINOPHEN
     Dosage: 1 GRAM, PRN
     Route: 048
  9. OMEPRAZOLE. [Suspect]
     Active Substance: OMEPRAZOLE
     Indication: PROPHYLAXIS
     Dosage: 20 MILLIGRAM, QD
     Route: 048
     Dates: start: 2009

REACTIONS (2)
  - Hypersensitivity pneumonitis [Recovering/Resolving]
  - Drug interaction [Recovering/Resolving]

NARRATIVE: CASE EVENT DATE: 20180827
